FAERS Safety Report 5779922-5 (Version None)
Quarter: 2008Q2

REPORT INFORMATION
  Report Type: 
  Country: None (occurrence: None)
  Receive Date: 20080620
  Receipt Date: 20080611
  Transmission Date: 20081010
  Serious: Yes (Other)
  Sender: FDA-Public Use
  Company Number: US-JNJFOC-20080603514

PATIENT
  Sex: Female
  Weight: 55.79 kg

DRUGS (4)
  1. DURAGESIC-100 [Suspect]
     Indication: PAIN
     Route: 062
  2. XANAX [Concomitant]
     Indication: NERVOUSNESS
     Route: 048
  3. EFFEXOR XR [Concomitant]
     Indication: DEPRESSION
     Route: 048
  4. SOMA [Concomitant]
     Indication: MUSCLE SPASMS
     Dosage: EVERY 4-6 HRS
     Route: 048

REACTIONS (3)
  - HYPERTENSION [None]
  - MUSCLE SPASMS [None]
  - PHARMACEUTICAL PRODUCT COMPLAINT [None]
